FAERS Safety Report 16171339 (Version 1)
Quarter: 2019Q2

REPORT INFORMATION
  Report Type: Spontaneous
  Country: US (occurrence: US)
  Receive Date: 20190408
  Receipt Date: 20190408
  Transmission Date: 20190711
  Serious: No
  Sender: FDA-Public Use
  Company Number: US-TARO-2019TAR00169

PATIENT
  Sex: Female
  Weight: 61.68 kg

DRUGS (1)
  1. FLUOROURACIL TOPICAL CREAM USP 5% [Suspect]
     Active Substance: FLUOROURACIL
     Indication: DERMATITIS
     Dosage: UNK UNK, 2X/DAY
     Route: 061
     Dates: start: 20190227, end: 20190301

REACTIONS (3)
  - Expired product administered [Recovered/Resolved]
  - Drug ineffective for unapproved indication [Not Recovered/Not Resolved]
  - Wrong product administered [Recovered/Resolved]
